FAERS Safety Report 24089720 (Version 1)
Quarter: 2024Q3

REPORT INFORMATION
  Report Type: Spontaneous
  Country: ZA (occurrence: ZA)
  Receive Date: 20240715
  Receipt Date: 20240715
  Transmission Date: 20241017
  Serious: Yes (Other)
  Sender: STRIDES
  Company Number: ZA-STRIDES ARCOLAB LIMITED-2024SP008069

PATIENT
  Age: 31 Year
  Sex: Female

DRUGS (7)
  1. EFAVIRENZ\EMTRICITABINE\TENOFOVIR DISOPROXIL FUMARATE [Suspect]
     Active Substance: EFAVIRENZ\EMTRICITABINE\TENOFOVIR DISOPROXIL FUMARATE
     Indication: HIV infection
     Dosage: UNK (FIRST-LINE ANTIRETROVIRAL THERAPY (ART))
     Route: 065
     Dates: start: 20170109
  2. TENOFOVIR DISOPROXIL FUMARATE [Suspect]
     Active Substance: TENOFOVIR DISOPROXIL FUMARATE
     Indication: HIV infection
     Dosage: UNK, SECOND-LINE ART REGIMEN
     Route: 065
     Dates: start: 20181204
  3. LAMIVUDINE [Suspect]
     Active Substance: LAMIVUDINE
     Indication: HIV infection
     Dosage: UNK, SECOND-LINE ART REGIMEN
     Route: 065
     Dates: start: 20200818
  4. EMTRICITABINE [Suspect]
     Active Substance: EMTRICITABINE
     Indication: HIV infection
     Dosage: UNK, SECOND-LINE ART REGIMEN
     Route: 065
     Dates: start: 20181204
  5. LOPINAVIR\RITONAVIR [Suspect]
     Active Substance: LOPINAVIR\RITONAVIR
     Indication: HIV infection
     Dosage: UNK, SECOND-LINE ART REGIMEN
     Route: 065
     Dates: start: 20181204
  6. ATAZANAVIR\RITONAVIR [Suspect]
     Active Substance: ATAZANAVIR\RITONAVIR
     Indication: HIV infection
     Dosage: UNK, QD, SECOND-LINE ART REGIMEN
     Route: 065
     Dates: start: 20200818
  7. ZIDOVUDINE [Suspect]
     Active Substance: ZIDOVUDINE
     Indication: HIV infection
     Dosage: UNK, SECOND-LINE ART REGIMEN
     Route: 065
     Dates: start: 20200818

REACTIONS (2)
  - Pathogen resistance [Unknown]
  - Treatment failure [Unknown]
